FAERS Safety Report 15806450 (Version 1)
Quarter: 2019Q1

REPORT INFORMATION
  Report Type: Spontaneous
  Country: US (occurrence: US)
  Receive Date: 20190110
  Receipt Date: 20190110
  Transmission Date: 20190417
  Serious: No
  Sender: FDA-Public Use
  Company Number: US-PFIZER INC-2017492672

PATIENT
  Age: 17 Year
  Sex: Male
  Weight: 108.8 kg

DRUGS (1)
  1. GENOTROPIN [Suspect]
     Active Substance: SOMATROPIN
     Indication: GROWTH HORMONE DEFICIENCY
     Dosage: 4.0 MG, DAILY
     Dates: start: 20060323

REACTIONS (4)
  - Red cell distribution width increased [Unknown]
  - Insulin-like growth factor increased [Unknown]
  - Product dose omission [Unknown]
  - Device issue [Unknown]
